FAERS Safety Report 5000186-4 (Version None)
Quarter: 2006Q1

REPORT INFORMATION
  Report Type: 
  Country: None (occurrence: None)
  Receive Date: 20060315
  Receipt Date: 20060209
  Transmission Date: 20060701
  Serious: Yes (Other)
  Sender: FDA-Public Use
  Company Number: 436189

PATIENT

DRUGS (1)
  1. BONIVA [Suspect]

REACTIONS (4)
  - ARTHRALGIA [None]
  - CHEST PAIN [None]
  - CHILLS [None]
  - MYALGIA [None]
